FAERS Safety Report 11275421 (Version 1)
Quarter: 2015Q3

REPORT INFORMATION
  Report Type: Spontaneous
  Country: FR (occurrence: FR)
  Receive Date: 20150716
  Receipt Date: 20150716
  Transmission Date: 20151125
  Serious: Yes (Life-Threatening, Hospitalization)
  Sender: FDA-Public Use
  Company Number: FR-AMGEN-FRASP2015069040

PATIENT
  Age: 91 Year
  Sex: Female

DRUGS (7)
  1. TANGANIL                           /00129601/ [Concomitant]
     Dosage: 5 MG, UNK
  2. DESLORATADINE. [Concomitant]
     Active Substance: DESLORATADINE
  3. KLIPAL CODEINE [Concomitant]
     Active Substance: ACETAMINOPHEN\CODEINE PHOSPHATE
  4. PROLIA [Suspect]
     Active Substance: DENOSUMAB
     Indication: OSTEOPOROTIC FRACTURE
     Dosage: 50 MG, Q6MO
     Route: 065
     Dates: start: 201409, end: 201503
  5. DAFALGAN [Concomitant]
     Active Substance: ACETAMINOPHEN
  6. MOPRAL                             /00661201/ [Concomitant]
     Active Substance: OMEPRAZOLE SODIUM
     Dosage: 20 MG, UNK
  7. LASILIX                            /00032601/ [Suspect]
     Active Substance: FUROSEMIDE
     Indication: OEDEMA DUE TO CARDIAC DISEASE
     Dosage: 20 MG, QD
     Route: 048
     Dates: start: 201503, end: 20150529

REACTIONS (1)
  - Hyponatraemia [Recovered/Resolved]

NARRATIVE: CASE EVENT DATE: 20150528
